FAERS Safety Report 14323661 (Version 1)
Quarter: 2017Q4

REPORT INFORMATION
  Report Type: Report from Study
  Country: JP (occurrence: JP)
  Receive Date: 20171226
  Receipt Date: 20171226
  Transmission Date: 20180321
  Serious: Yes (Life-Threatening, Hospitalization)
  Sender: FDA-Public Use
  Company Number: JP-ROCHE-646639

PATIENT
  Age: 7 Year
  Sex: Male

DRUGS (20)
  1. CICLOSPORIN A [Suspect]
     Active Substance: CYCLOSPORINE
     Indication: NEPHROTIC SYNDROME
     Dosage: UNK MG, QD, THE THERAPY WAS STOPPED IN RESPONSE TO THE EVENTS AND THE LAST DOSE RECEIVED WAS ON 10/M
     Route: 048
     Dates: start: 200311, end: 20080310
  2. PREDNISOLONE. [Concomitant]
     Active Substance: PREDNISOLONE
     Indication: NEPHROTIC SYNDROME
     Dosage: 45 MG, QD
     Route: 048
     Dates: start: 20071109, end: 20071210
  3. LASIX [Concomitant]
     Active Substance: FUROSEMIDE
     Dosage: 20 MG, QD
     Route: 065
     Dates: start: 20071115, end: 20071117
  4. NORVASC [Concomitant]
     Active Substance: AMLODIPINE BESYLATE
     Dosage: 2.5 MG, QD
     Route: 048
     Dates: start: 20071115, end: 20071225
  5. LONGES [Concomitant]
     Active Substance: LISINOPRIL
     Indication: HYPERTENSION
     Dosage: 5 MG, QD
     Route: 048
     Dates: start: 20071024, end: 20071114
  6. METHYLPREDNISOLONE. [Concomitant]
     Active Substance: METHYLPREDNISOLONE
     Dosage: 1- 1.5 MG/KG SINGLE DOSE
     Route: 042
  7. RITUXIMAB. [Suspect]
     Active Substance: RITUXIMAB
     Indication: NEPHROTIC SYNDROME
     Dosage: 300 MG, UNK; TOTAL: FOUR DOSES
     Route: 042
     Dates: start: 20071122, end: 20071217
  8. PREDNISOLONE. [Concomitant]
     Active Substance: PREDNISOLONE
     Dosage: 45 MG, QD
     Route: 048
     Dates: start: 20071109, end: 20071210
  9. PERSANTIN [Concomitant]
     Active Substance: DIPYRIDAMOLE
     Dosage: 150 MG, QD
     Route: 048
     Dates: start: 20070829, end: 20080226
  10. PREDNISOLONE. [Concomitant]
     Active Substance: PREDNISOLONE
     Dosage: UNK MG, QOD
     Route: 048
     Dates: start: 20071211, end: 20080203
  11. LONGES [Concomitant]
     Active Substance: LISINOPRIL
     Dosage: 5 MG, QD
     Route: 048
     Dates: start: 20071126, end: 20080310
  12. PERSANTIN [Concomitant]
     Active Substance: DIPYRIDAMOLE
     Indication: NEPHROTIC SYNDROME
     Dosage: 150 MG, QD
     Route: 048
     Dates: start: 20070829, end: 20080226
  13. LASIX [Concomitant]
     Active Substance: FUROSEMIDE
     Indication: NEPHROTIC SYNDROME
     Dosage: 20 MG, QD
     Route: 065
     Dates: start: 20071115, end: 20071117
  14. NORVASC [Concomitant]
     Active Substance: AMLODIPINE BESYLATE
     Indication: HYPERTENSION
     Dosage: 2.5 MG, QD
     Route: 048
     Dates: start: 20071115, end: 20071225
  15. ACETAMINOPHEN. [Concomitant]
     Active Substance: ACETAMINOPHEN
     Dosage: 10 MG/KG (MAXIMUM 300 KG) SINGLE DOSE
     Route: 048
  16. CHLORPHENIRAMINE. [Concomitant]
     Active Substance: CHLORPHENIRAMINE
     Dosage: 0.04 MG/KG, MAXIMUM DOSE 2 MG (SINGLE DOSE)
     Route: 065
  17. PREDNISOLONE. [Concomitant]
     Active Substance: PREDNISOLONE
     Dosage: UNK MG, QOD
     Route: 048
     Dates: start: 20071211, end: 20080203
  18. LONGES [Concomitant]
     Active Substance: LISINOPRIL
     Dosage: 5 MG, QD
     Route: 048
     Dates: start: 20071126, end: 20080310
  19. MIZORIBINE [Concomitant]
     Active Substance: MIZORIBINE
     Indication: NEPHROTIC SYNDROME
     Dosage: 150 MG, QD
     Route: 065
     Dates: start: 200608, end: 200711
  20. LONGES [Concomitant]
     Active Substance: LISINOPRIL
     Dosage: 5 MG, QD
     Route: 048
     Dates: start: 20071024, end: 20071114

REACTIONS (4)
  - Off label use [Unknown]
  - Tonsillitis [Recovered/Resolved]
  - Intentional product use issue [Unknown]
  - Agranulocytosis [Recovered/Resolved]

NARRATIVE: CASE EVENT DATE: 20080311
